FAERS Safety Report 9834414 (Version 2)
Quarter: 2014Q3

REPORT INFORMATION
  Report Type: Spontaneous
  Country: US (occurrence: US)
  Receive Date: 20140122
  Receipt Date: 20140812
  Transmission Date: 20150326
  Serious: Yes (Death, Hospitalization, Other)
  Sender: FDA-Public Use
  Company Number: US-ALEXION PHARMACEUTICALS INC.-A201304210

PATIENT
  Age: 69 Year
  Sex: Female

DRUGS (2)
  1. SOLIRIS [Suspect]
     Active Substance: ECULIZUMAB
     Indication: OFF LABEL USE
  2. SOLIRIS [Suspect]
     Active Substance: ECULIZUMAB
     Indication: HAEMOLYTIC URAEMIC SYNDROME
     Dosage: UNK, WEEKLY TIMES 5 WEEKS
     Route: 042

REACTIONS (14)
  - Off label use [Unknown]
  - Escherichia infection [Unknown]
  - Blood lactate dehydrogenase increased [Recovering/Resolving]
  - Deep vein thrombosis [Recovered/Resolved]
  - Type 2 diabetes mellitus [Unknown]
  - Dysphagia [Recovering/Resolving]
  - Haemolytic uraemic syndrome [Unknown]
  - Decubitus ulcer [Recovering/Resolving]
  - Pneumonia [Recovering/Resolving]
  - Cardiac arrest [Fatal]
  - Renal failure acute [Recovered/Resolved]
  - Metabolic encephalopathy [Recovering/Resolving]
  - Pancytopenia [Unknown]
  - Abdominal pain [Unknown]

NARRATIVE: CASE EVENT DATE: 201311
